FAERS Safety Report 4601731-0 (Version None)
Quarter: 2005Q1

REPORT INFORMATION
  Report Type: 
  Country: None (occurrence: None)
  Receive Date: 20050128
  Receipt Date: 20041116
  Transmission Date: 20050727
  Serious: No
  Sender: FDA-Public Use
  Company Number: WAES 0411USA02917

PATIENT
  Age: 45 Year
  Sex: Female

DRUGS (7)
  1. EMEND [Suspect]
     Dosage: 125 MG/ PO;  80 MG/ PO
     Route: 048
     Dates: start: 20041112
  2. ANZEMET [Concomitant]
  3. AVASTIN [Concomitant]
  4. DECADRON [Concomitant]
  5. LEUCOVORIN [Concomitant]
  6. FLUOROURACIL [Concomitant]
  7. OXALIPLATIN [Concomitant]

REACTIONS (3)
  - FATIGUE [None]
  - HEADACHE [None]
  - SWELLING FACE [None]
